FAERS Safety Report 9858182 (Version 1)
Quarter: 2014Q1

REPORT INFORMATION
  Report Type: Spontaneous
  Country: US (occurrence: US)
  Receive Date: 20140131
  Receipt Date: 20140131
  Transmission Date: 20141002
  Serious: Yes (Disabling, Other)
  Sender: FDA-Public Use
  Company Number: US-009507513-1401USA012792

PATIENT
  Sex: Female

DRUGS (4)
  1. FOSAMAX [Suspect]
     Dosage: UNK
     Route: 048
     Dates: start: 200603, end: 201112
  2. ALENDRONATE SODIUM [Suspect]
     Dosage: UNK
     Dates: start: 200603, end: 201112
  3. BONIVA [Suspect]
     Dosage: UNK
     Dates: start: 200603, end: 201112
  4. IBANDRONATE SODIUM [Suspect]
     Dosage: UNK
     Dates: start: 200603, end: 201112

REACTIONS (3)
  - Femur fracture [Not Recovered/Not Resolved]
  - Femur fracture [Not Recovered/Not Resolved]
  - Surgery [Not Recovered/Not Resolved]
